FAERS Safety Report 22211332 (Version 1)
Quarter: 2023Q2

REPORT INFORMATION
  Report Type: Spontaneous
  Country: US (occurrence: None)
  Receive Date: 20230413
  Receipt Date: 20230413
  Transmission Date: 20230721
  Serious: No
  Sender: FDA-Public Use
  Company Number: None

PATIENT
  Sex: 0

DRUGS (1)
  1. FUZEON [Suspect]
     Active Substance: ENFUVIRTIDE

REACTIONS (6)
  - Injection site pain [None]
  - Scar [None]
  - Swelling [None]
  - Gait inability [None]
  - Injection related reaction [None]
  - Walking aid user [None]
